FAERS Safety Report 9891369 (Version 1)
Quarter: 2014Q1

REPORT INFORMATION
  Report Type: Spontaneous
  Country: US (occurrence: None)
  Receive Date: 20140210
  Receipt Date: 20140210
  Transmission Date: 20141002
  Serious: Yes (Death)
  Sender: FDA-Public Use
  Company Number: UTC-044053

PATIENT
  Age: 78 Year
  Sex: Male

DRUGS (4)
  1. TYVASO [Suspect]
     Indication: PULMONARY ARTERIAL HYPERTENSION
     Route: 055
     Dates: start: 20131204
  2. ADCIRCA(TADALAFIL) [Concomitant]
  3. TRACLEER(BOSENTAN) [Concomitant]
  4. HCTZ(HYDROCHLORTHIAZIDE) [Concomitant]

REACTIONS (4)
  - Dyspnoea [None]
  - Disease progression [None]
  - Pulmonary arterial hypertension [None]
  - Sudden death [None]
